FAERS Safety Report 5376130-7 (Version None)
Quarter: 2007Q3

REPORT INFORMATION
  Report Type: 
  Country: None (occurrence: None)
  Receive Date: 20070702
  Receipt Date: 20070620
  Transmission Date: 20080115
  Serious: Yes (Hospitalization)
  Sender: FDA-Public Use
  Company Number: B0477298A

PATIENT
  Age: 55 Year
  Sex: Female

DRUGS (1)
  1. ARIXTRA [Suspect]
     Route: 058
     Dates: start: 20070101

REACTIONS (3)
  - DEEP VEIN THROMBOSIS [None]
  - DRUG INEFFECTIVE [None]
  - SHOCK HAEMORRHAGIC [None]
